FAERS Safety Report 5211586-1 (Version None)
Quarter: 2007Q1

REPORT INFORMATION
  Report Type: 
  Country: None (occurrence: None)
  Receive Date: 20070118
  Receipt Date: 20070110
  Transmission Date: 20070707
  Serious: Yes (Hospitalization, Other)
  Sender: FDA-Public Use
  Company Number: US-BAYER-200616137BWH

PATIENT
  Age: 63 Year
  Sex: Male

DRUGS (6)
  1. LEVITRA [Suspect]
     Indication: ERECTILE DYSFUNCTION
     Route: 048
     Dates: start: 20060201, end: 20060501
  2. LEVOXYL [Concomitant]
     Indication: HYPOTHYROIDISM
  3. PLAVIX [Concomitant]
  4. TOPROL-XL [Concomitant]
  5. FISH OIL [Concomitant]
  6. VYTORIN [Concomitant]

REACTIONS (2)
  - CORONARY ARTERY OCCLUSION [None]
  - MITRAL VALVE PROLAPSE [None]
